FAERS Safety Report 9726398 (Version 1)
Quarter: 2013Q4

REPORT INFORMATION
  Report Type: Spontaneous
  Country: US (occurrence: US)
  Receive Date: 20131203
  Receipt Date: 20131203
  Transmission Date: 20140711
  Serious: No
  Sender: FDA-Public Use
  Company Number: US-BAYER-2013-147251

PATIENT
  Sex: Female

DRUGS (11)
  1. BETASERON [Suspect]
     Dosage: 0.25 MG, QOD
     Route: 058
  2. ALTACE [Concomitant]
     Dosage: 1.25 MG, UNK
  3. TOPROL [Concomitant]
     Dosage: 25 MG, UNK
  4. NEXIUM [Concomitant]
     Dosage: 20 MG, UNK
  5. ASPIRIN [Concomitant]
     Dosage: 325 MG, UNK
  6. LEXAPRO [Concomitant]
     Dosage: 10 MG, UNK
  7. METFORMIN [Concomitant]
     Dosage: 1000 MG, UNK
  8. JANUVIA [Concomitant]
     Dosage: 25 MG, UNK
  9. ALLEGRA [Concomitant]
     Dosage: 180 MG, UNK
  10. LIPITOR [Concomitant]
     Dosage: 10 MG, UNK
  11. CHROMIUM [Concomitant]
     Dosage: 1 MG, UNK

REACTIONS (3)
  - Tremor [Unknown]
  - Musculoskeletal stiffness [Unknown]
  - Pyrexia [Unknown]
